FAERS Safety Report 4506018-2 (Version None)
Quarter: 2004Q4

REPORT INFORMATION
  Report Type: 
  Country: None (occurrence: None)
  Receive Date: 20041025
  Receipt Date: 20031230
  Transmission Date: 20050328
  Serious: Yes (Other)
  Sender: FDA-Public Use
  Company Number: US-JNJFOC-20030905148

PATIENT
  Age: 34 Year
  Sex: Female

DRUGS (6)
  1. REMICADE [Suspect]
     Dosage: 200 MG, 1 IN 1 DAY, INTRAVENOUS
     Route: 042
  2. IMURAN [Concomitant]
  3. PLAQUENIL [Concomitant]
  4. PREDNISONE [Concomitant]
  5. MINOCYCLINE HCL [Concomitant]
  6. ALLEGRA [Concomitant]

REACTIONS (1)
  - BREAST CANCER [None]
